FAERS Safety Report 10186887 (Version 1)
Quarter: 2014Q2

REPORT INFORMATION
  Report Type: Spontaneous
  Country: US (occurrence: US)
  Receive Date: 20140522
  Receipt Date: 20140522
  Transmission Date: 20141212
  Serious: No
  Sender: FDA-Public Use
  Company Number: US-009507513-1405USA010836

PATIENT
  Age: 46 Year
  Sex: Male

DRUGS (1)
  1. JANUVIA [Suspect]
     Indication: BLOOD GLUCOSE
     Dosage: UNK
     Route: 048
     Dates: start: 20140420

REACTIONS (3)
  - Mood swings [Unknown]
  - Confusional state [Unknown]
  - Irritability [Unknown]
